FAERS Safety Report 21452449 (Version 2)
Quarter: 2022Q4

REPORT INFORMATION
  Report Type: Report from Study
  Country: KR (occurrence: None)
  Receive Date: 20221013
  Receipt Date: 20221025
  Transmission Date: 20230112
  Serious: Yes (Hospitalization)
  Sender: FDA-Public Use
  Company Number: KR-ROCHE-3195395

PATIENT
  Age: 47 Year
  Sex: Female

DRUGS (2)
  1. ATEZOLIZUMAB [Suspect]
     Active Substance: ATEZOLIZUMAB
     Indication: Triple negative breast cancer
     Dosage: DATE OF LAST DOSE PRIOR TO ADVERSE EVENT/SPECIAL 29/JUL/2022
     Route: 041
     Dates: start: 20210806
  2. CAPECITABINE [Suspect]
     Active Substance: CAPECITABINE
     Indication: Triple negative breast cancer
     Dosage: DATE OF LAST DOSE PRIOR TO ADVERSE EVENT: 29/JUL/2022
     Route: 048
     Dates: start: 20210806

REACTIONS (2)
  - Appendicitis [Recovered/Resolved]
  - Focal peritonitis [Recovered/Resolved]

NARRATIVE: CASE EVENT DATE: 20221001
